FAERS Safety Report 7969168-4 (Version None)
Quarter: 2011Q4

REPORT INFORMATION
  Report Type: 
  Country: None (occurrence: None)
  Receive Date: 20111208
  Receipt Date: 20111130
  Transmission Date: 20120403
  Serious: Yes (Hospitalization)
  Sender: FDA-Public Use
  Company Number: OMPQ-PR-1112S-1765

PATIENT
  Age: 55 Year
  Sex: Female

DRUGS (1)
  1. OMNIPAQUE 70 [Suspect]
     Indication: PAIN MANAGEMENT
     Dosage: SINGLE DOSE
     Dates: start: 20110909, end: 20110909

REACTIONS (2)
  - EXTRADURAL ABSCESS [None]
  - INJECTION SITE ABSCESS [None]
